FAERS Safety Report 4953715-0 (Version None)
Quarter: 2006Q1

REPORT INFORMATION
  Report Type: 
  Country: None (occurrence: None)
  Receive Date: 20060323
  Receipt Date: 20060323
  Transmission Date: 20060701
  Serious: Yes (Disabling)
  Sender: FDA-Public Use
  Company Number: None

PATIENT
  Sex: Male
  Weight: 57.6068 kg

DRUGS (1)
  1. ISOVUE-300 [Suspect]
     Indication: LUNG NEOPLASM MALIGNANT
     Dosage: 150MLS    2CC PER SEC   IV
     Route: 042
     Dates: start: 20060322, end: 20060322

REACTIONS (2)
  - INFUSION RELATED REACTION [None]
  - RASH [None]
